FAERS Safety Report 13760591 (Version 2)
Quarter: 2017Q3

REPORT INFORMATION
  Report Type: Spontaneous
  Country: US (occurrence: US)
  Receive Date: 20170717
  Receipt Date: 20170828
  Transmission Date: 20171127
  Serious: Yes (Death, Hospitalization, Other)
  Sender: FDA-Public Use
  Company Number: US-REGENERON PHARMACEUTICALS, INC.-2017-18642

PATIENT

DRUGS (7)
  1. EYLEA [Suspect]
     Active Substance: AFLIBERCEPT
     Dosage: MONTHLY, LEFT EYE (OS)
     Route: 031
     Dates: start: 20160524, end: 20160524
  2. EYLEA [Suspect]
     Active Substance: AFLIBERCEPT
     Indication: RETINAL TELANGIECTASIA
     Dosage: MONTHLY, LEFT EYE (OS)
     Route: 031
     Dates: start: 20160428, end: 20160428
  3. EYLEA [Suspect]
     Active Substance: AFLIBERCEPT
     Dosage: MONTHLY, LEFT EYE (OS)
     Route: 031
     Dates: start: 20160621, end: 20160621
  4. EYLEA [Suspect]
     Active Substance: AFLIBERCEPT
     Dosage: MONTHLY, LEFT EYE (OS), LAST DOSE
     Route: 031
     Dates: start: 20160915, end: 20160915
  5. EYLEA [Suspect]
     Active Substance: AFLIBERCEPT
     Dosage: MONTHLY, LEFT EYE (OS)
     Route: 031
     Dates: start: 20160818, end: 20160818
  6. EYLEA [Suspect]
     Active Substance: AFLIBERCEPT
     Dosage: MONTHLY, LEFT EYE (OS)
     Route: 031
     Dates: start: 20160719, end: 20160719
  7. EYLEA [Suspect]
     Active Substance: AFLIBERCEPT
     Indication: RETINAL VEIN OCCLUSION
     Dosage: MONTHLY, LEFT EYE (OS)
     Route: 031
     Dates: start: 20160329, end: 20160329

REACTIONS (4)
  - Off label use [Unknown]
  - Respiratory failure [Fatal]
  - Pneumonia [Fatal]
  - Drug dose omission [Unknown]

NARRATIVE: CASE EVENT DATE: 201611
